FAERS Safety Report 9522249 (Version 2)
Quarter: 2013Q4

REPORT INFORMATION
  Report Type: Spontaneous
  Country: US (occurrence: None)
  Receive Date: 20130903
  Receipt Date: 20131028
  Transmission Date: 20140711
  Serious: Yes (Other)
  Sender: FDA-Public Use
  Company Number: 2250051-2013-00207

PATIENT
  Sex: Female
  Weight: 72.58 kg

DRUGS (1)
  1. RHOGAM ULTRA-FILTERED PLUS [Suspect]
     Indication: PROPHYLAXIS
     Dates: start: 20120804

REACTIONS (4)
  - Hepatitis C [None]
  - Product contamination microbial [None]
  - Exposure during pregnancy [None]
  - Poor quality drug administered [None]
